FAERS Safety Report 6423603-1 (Version None)
Quarter: 2009Q4

REPORT INFORMATION
  Report Type: 
  Country: None (occurrence: None)
  Receive Date: 20091102
  Receipt Date: 20091020
  Transmission Date: 20100525
  Serious: Yes (Other)
  Sender: FDA-Public Use
  Company Number: GR-JNJFOC-20091006550

PATIENT
  Age: 46 Year
  Sex: Male

DRUGS (1)
  1. INFLIXIMAB [Suspect]
     Indication: PSORIATIC ARTHROPATHY
     Dosage: 3.9 MG/KG
     Route: 042

REACTIONS (3)
  - DRUG INEFFECTIVE [None]
  - IGA NEPHROPATHY [None]
  - THERAPEUTIC RESPONSE UNEXPECTED [None]
